FAERS Safety Report 12378169 (Version 2)
Quarter: 2016Q2

REPORT INFORMATION
  Report Type: Spontaneous
  Country: US (occurrence: US)
  Receive Date: 20160517
  Receipt Date: 20160607
  Transmission Date: 20160815
  Serious: No
  Sender: FDA-Public Use
  Company Number: US-MDT-ADR-2016-00887

PATIENT
  Age: 6 Year
  Sex: Female

DRUGS (2)
  1. LIORESAL [Suspect]
     Active Substance: BACLOFEN
     Dosage: 120 MCG/DAY
     Route: 037
     Dates: start: 20160511
  2. LIORESAL [Suspect]
     Active Substance: BACLOFEN
     Dosage: 120 MCG/DAY
     Route: 037
     Dates: end: 20160511

REACTIONS (1)
  - Incorrect drug administration rate [Recovered/Resolved]

NARRATIVE: CASE EVENT DATE: 20160511
